FAERS Safety Report 25216400 (Version 1)
Quarter: 2025Q2

REPORT INFORMATION
  Report Type: Report from Study
  Country: EG (occurrence: EG)
  Receive Date: 20250418
  Receipt Date: 20250418
  Transmission Date: 20250717
  Serious: Yes (Other)
  Sender: ROCHE
  Company Number: EG-ROCHE-10000258745

PATIENT
  Sex: Male

DRUGS (1)
  1. POLIVY [Suspect]
     Active Substance: POLATUZUMAB VEDOTIN-PIIQ
     Indication: Lymphoma
     Route: 042
     Dates: start: 20250123, end: 20250223

REACTIONS (2)
  - Disease progression [Not Recovered/Not Resolved]
  - Eating disorder [Unknown]
